FAERS Safety Report 16633771 (Version 1)
Quarter: 2019Q3

REPORT INFORMATION
  Report Type: Spontaneous
  Country: US (occurrence: US)
  Receive Date: 20190725
  Receipt Date: 20190725
  Transmission Date: 20191004
  Serious: No
  Sender: FDA-Public Use
  Company Number: US-DERMIRA, INC.-US-2019DER000392

PATIENT
  Age: 23 Year
  Sex: Female
  Weight: 56.69 kg

DRUGS (8)
  1. ALPRAZOLAM. [Suspect]
     Active Substance: ALPRAZOLAM
     Indication: PANIC ATTACK
     Dosage: 1 MG, PRN
     Dates: start: 201903
  2. ALPRAZOLAM. [Suspect]
     Active Substance: ALPRAZOLAM
     Indication: HYPERHIDROSIS
  3. CLARITIN [Concomitant]
     Active Substance: LORATADINE
     Indication: HYPERSENSITIVITY
     Dosage: UNK, QD
     Dates: start: 2004
  4. ADDERALL [Concomitant]
     Active Substance: AMPHETAMINE ASPARTATE\AMPHETAMINE SULFATE\DEXTROAMPHETAMINE SACCHARATE\DEXTROAMPHETAMINE SULFATE
     Indication: ATTENTION DEFICIT/HYPERACTIVITY DISORDER
     Dosage: 1/4 OF A 30 MG TABLET, PRN
     Route: 048
     Dates: start: 2004
  5. CLONAZEPAM. [Concomitant]
     Active Substance: CLONAZEPAM
     Indication: HYPERHIDROSIS
  6. CLONAZEPAM. [Concomitant]
     Active Substance: CLONAZEPAM
     Indication: ANXIETY
     Dosage: 1 MG, PRN
     Dates: start: 20141018
  7. JUNEL FE 1/20 [Concomitant]
     Active Substance: ETHINYL ESTRADIOL\NORETHINDRONE ACETATE
     Indication: CONTRACEPTION
     Dosage: UNK, QD
     Dates: start: 2012
  8. QBREXZA [Suspect]
     Active Substance: GLYCOPYRRONIUM TOSYLATE
     Indication: HYPERHIDROSIS
     Dosage: UNK, PRN
     Route: 061
     Dates: start: 201903, end: 20190604

REACTIONS (3)
  - Off label use [Unknown]
  - Intentional product misuse [Unknown]
  - Hyperhidrosis [Not Recovered/Not Resolved]

NARRATIVE: CASE EVENT DATE: 201903
